FAERS Safety Report 5824506-3 (Version None)
Quarter: 2008Q3

REPORT INFORMATION
  Report Type: 
  Country: None (occurrence: None)
  Receive Date: 20080728
  Receipt Date: 20080716
  Transmission Date: 20090109
  Serious: Yes (Death)
  Sender: FDA-Public Use
  Company Number: US-JNJFOC-20080503394

PATIENT
  Sex: Female
  Weight: 62.6 kg

DRUGS (14)
  1. DURAGESIC-100 [Suspect]
     Indication: RHEUMATOID ARTHRITIS
     Route: 062
  2. DURAGESIC-100 [Suspect]
     Indication: PAIN
     Dosage: TAKEN AT 07:00
     Route: 062
  3. MS CONTIN [Suspect]
     Indication: RHEUMATOID ARTHRITIS
     Dosage: 60/ 900 MG
     Route: 065
  4. QUETIAPINE FUMARATE [Suspect]
     Indication: DEPRESSION
     Dosage: TAKEN AT21:00
     Route: 065
  5. PERCOCET [Suspect]
     Indication: DRUG USE FOR UNKNOWN INDICATION
     Dosage: 35/25
     Route: 065
  6. ZOLOFT [Suspect]
     Indication: DRUG USE FOR UNKNOWN INDICATION
     Route: 065
  7. BUSPAR [Concomitant]
     Indication: DEPRESSION
     Dosage: TAKEN AT 07:00, 13:00 AND 19:00
     Route: 065
  8. DEPAKOTE ER [Concomitant]
     Indication: DEPRESSION
     Dosage: 2 X 250 MG TAKEN AT 19:00
     Route: 065
  9. KLONOPIN [Concomitant]
     Indication: PANIC ATTACK
     Dosage: TAKEN AT 21:00
     Route: 065
  10. REMERON SOLTAB [Concomitant]
     Indication: SLEEP DISORDER
     Route: 065
  11. REMERON SOLTAB [Concomitant]
     Indication: DEPRESSION
     Dosage: ONE AT NIGHT TAKEN AT 21:00
     Route: 065
  12. PRILOSEC [Concomitant]
     Indication: ULCER
     Dosage: TAKEN AT 09:00
     Route: 065
  13. SYNTHROID [Concomitant]
     Route: 065
  14. SYNTHROID [Concomitant]
     Indication: HYPOTHYROIDISM
     Route: 065

REACTIONS (1)
  - RESPIRATORY DEPRESSION [None]
